FAERS Safety Report 5663479-3 (Version None)
Quarter: 2008Q1

REPORT INFORMATION
  Report Type: 
  Country: None (occurrence: None)
  Receive Date: 20080310
  Receipt Date: 20080301
  Transmission Date: 20080703
  Serious: Yes (Other)
  Sender: FDA-Public Use
  Company Number: 2008AP000341

PATIENT
  Age: 59 Year
  Sex: Female

DRUGS (6)
  1. KETOCONAZOLE [Suspect]
     Indication: NAIL INFECTION
     Dosage: 200 MG;TAB;PO;QD
     Route: 048
     Dates: start: 20071114
  2. KETOCONAZOLE [Suspect]
     Indication: NAIL INFECTION
     Dosage: 200 MG;TAB;PO;QD
     Route: 048
     Dates: start: 20071114
  3. ROSUVASTATIN (ROSUVASTATIN) [Concomitant]
  4. NICOTINIC ACID [Concomitant]
  5. ACETYLSALICYLIC ACID SRT [Concomitant]
  6. RISEDRONIC ACID (RISEDRONIC ACID) [Concomitant]

REACTIONS (3)
  - BREAST PAIN [None]
  - BREAST TENDERNESS [None]
  - FIBROCYSTIC BREAST DISEASE [None]
